FAERS Safety Report 25780021 (Version 2)
Quarter: 2025Q3

REPORT INFORMATION
  Report Type: Report from Study
  Country: CA (occurrence: CA)
  Receive Date: 20250909
  Receipt Date: 20250916
  Transmission Date: 20251021
  Serious: Yes (Other)
  Sender: BAUSCH AND LOMB
  Company Number: CA-BAUSCH-BL-2025-002829

PATIENT
  Age: 58 Year
  Sex: Female

DRUGS (6)
  1. SILIQ [Suspect]
     Active Substance: BRODALUMAB
     Indication: Psoriasis
     Dosage: 210 MG/1.5 ML, INDUCTION WEEKLY
     Route: 058
     Dates: start: 20250224, end: 20250319
  2. SILIQ [Suspect]
     Active Substance: BRODALUMAB
     Dosage: 210MG/1.5ML, Q2WEEKS
     Route: 058
     Dates: start: 202503
  3. DUOBRII [Suspect]
     Active Substance: HALOBETASOL PROPIONATE\TAZAROTENE
     Indication: Product used for unknown indication
     Route: 065
     Dates: start: 20250514, end: 202506
  4. BETAMETHASONE DIPROPIONATE\CALCIPOTRIENE MONOHYDRATE [Suspect]
     Active Substance: BETAMETHASONE DIPROPIONATE\CALCIPOTRIENE MONOHYDRATE
     Indication: Product used for unknown indication
     Route: 065
     Dates: start: 20250626
  5. SORIATANE [Concomitant]
     Active Substance: ACITRETIN
     Indication: Product used for unknown indication
     Route: 065
     Dates: end: 202505
  6. CRESTOR [Concomitant]
     Active Substance: ROSUVASTATIN CALCIUM
     Indication: Blood cholesterol abnormal
     Route: 065

REACTIONS (11)
  - Device dislocation [Unknown]
  - Gait disturbance [Recovering/Resolving]
  - Skin erosion [Recovering/Resolving]
  - Joint swelling [Recovering/Resolving]
  - Psoriasis [Recovering/Resolving]
  - Peripheral swelling [Recovering/Resolving]
  - Skin induration [Recovering/Resolving]
  - Erythema [Recovering/Resolving]
  - Burning sensation [Unknown]
  - Fatigue [Recovering/Resolving]
  - Rash [Recovered/Resolved]

NARRATIVE: CASE EVENT DATE: 20250101
